FAERS Safety Report 7658337-9 (Version None)
Quarter: 2011Q3

REPORT INFORMATION
  Report Type: 
  Country: None (occurrence: None)
  Receive Date: 20110804
  Receipt Date: 20110804
  Transmission Date: 20111222
  Serious: No
  Sender: FDA-Public Use
  Company Number: None

PATIENT
  Sex: Female
  Weight: 79.11 kg

DRUGS (3)
  1. TAXOL [Suspect]
     Dosage: 330 MG
  2. NEULASTA [Suspect]
     Dosage: 6 MG
  3. CARBOPLATIN [Suspect]
     Dosage: 850 MG

REACTIONS (1)
  - LYMPHOCYTE COUNT DECREASED [None]
